FAERS Safety Report 11999253 (Version 1)
Quarter: 2016Q1

REPORT INFORMATION
  Report Type: Spontaneous
  Country: US (occurrence: None)
  Receive Date: 20160203
  Receipt Date: 20160203
  Transmission Date: 20160526
  Serious: No
  Sender: FDA-Public Use
  Company Number: None

PATIENT

DRUGS (1)
  1. BACTRIM DS [Suspect]
     Active Substance: SULFAMETHOXAZOLE\TRIMETHOPRIM

REACTIONS (6)
  - Drug prescribing error [None]
  - Drug dispensing error [None]
  - Transcription medication error [None]
  - Urticaria [None]
  - Documented hypersensitivity to administered product [None]
  - Erythema [None]
